FAERS Safety Report 25074875 (Version 1)
Quarter: 2025Q1

REPORT INFORMATION
  Report Type: Spontaneous
  Country: CA (occurrence: CA)
  Receive Date: 20250313
  Receipt Date: 20250313
  Transmission Date: 20250409
  Serious: Yes (Other)
  Sender: BOEHRINGER INGELHEIM
  Company Number: CA-BoehringerIngelheim-2025-BI-014584

PATIENT
  Age: 83 Year
  Sex: Male

DRUGS (13)
  1. EMPAGLIFLOZIN [Suspect]
     Active Substance: EMPAGLIFLOZIN
     Indication: Cardiac failure
  2. RAMIPRIL [Suspect]
     Active Substance: RAMIPRIL
     Indication: Cardiac failure
  3. SPIRONOLACTONE [Suspect]
     Active Substance: SPIRONOLACTONE
     Indication: Cardiac failure
  4. BISOPROLOL [Suspect]
     Active Substance: BISOPROLOL
     Indication: Cardiac failure
  5. ISOSORBIDE DINITRATE [Concomitant]
     Active Substance: ISOSORBIDE DINITRATE
     Indication: Cardiac failure
  6. TAMSULOSIN [Concomitant]
     Active Substance: TAMSULOSIN
     Indication: Cardiac failure
  7. CLOPIDOGREL [Concomitant]
     Active Substance: CLOPIDOGREL BISULFATE
     Indication: Cardiac failure
  8. FUROSEMIDE [Concomitant]
     Active Substance: FUROSEMIDE
     Indication: Cardiac failure
  9. FUROSEMIDE [Concomitant]
     Active Substance: FUROSEMIDE
     Dosage: 1 EVERY 1 DAYS
  10. ATORVASTATIN [Concomitant]
     Active Substance: ATORVASTATIN
     Indication: Cardiac failure
  11. ASPIRIN [Concomitant]
     Active Substance: ASPIRIN
     Indication: Cardiac failure
  12. METOPROLOL [Concomitant]
     Active Substance: METOPROLOL
     Indication: Cardiac failure
  13. HYDRALAZINE [Concomitant]
     Active Substance: HYDRALAZINE HYDROCHLORIDE
     Indication: Cardiac failure

REACTIONS (3)
  - Hyperkalaemia [Recovering/Resolving]
  - Bradycardia [Recovering/Resolving]
  - Hypovolaemia [Recovering/Resolving]
